FAERS Safety Report 24118437 (Version 1)
Quarter: 2024Q3

REPORT INFORMATION
  Report Type: Spontaneous
  Country: US (occurrence: US)
  Receive Date: 20240722
  Receipt Date: 20240722
  Transmission Date: 20241016
  Serious: Yes (Other)
  Sender: EPIC PHARM
  Company Number: US-EPICPHARMA-US-2024EPCLIT00835

PATIENT
  Age: 63 Year
  Sex: Male

DRUGS (1)
  1. RIFAMPIN [Suspect]
     Active Substance: RIFAMPIN
     Indication: Latent tuberculosis
     Route: 065

REACTIONS (7)
  - Pleural effusion [Unknown]
  - Pericarditis [Unknown]
  - Cardiac tamponade [Unknown]
  - Obstructive shock [Recovering/Resolving]
  - Drug-induced liver injury [Unknown]
  - Renal failure [Unknown]
  - Serositis [Unknown]
